FAERS Safety Report 21060964 (Version 1)
Quarter: 2022Q3

REPORT INFORMATION
  Report Type: Spontaneous
  Country: US (occurrence: None)
  Receive Date: 20220709
  Receipt Date: 20220709
  Transmission Date: 20221027
  Serious: Yes (Hospitalization)
  Sender: FDA-Public Use
  Company Number: US-ROCHE-3134836

PATIENT
  Sex: Female

DRUGS (1)
  1. ESBRIET [Suspect]
     Active Substance: PIRFENIDONE
     Indication: Idiopathic pulmonary fibrosis
     Dosage: 2 - 267 MG
     Route: 048

REACTIONS (6)
  - Atrial fibrillation [Unknown]
  - Hypersomnia [Not Recovered/Not Resolved]
  - COVID-19 [Unknown]
  - Sedation [Unknown]
  - Altered state of consciousness [Unknown]
  - Somnolence [Unknown]
